FAERS Safety Report 11793147 (Version 1)
Quarter: 2015Q4

REPORT INFORMATION
  Report Type: Report from Study
  Country: JP (occurrence: JP)
  Receive Date: 20151202
  Receipt Date: 20151202
  Transmission Date: 20160305
  Serious: Yes (Death, Hospitalization, Other)
  Sender: FDA-Public Use
  Company Number: PHHY2015JP126722

PATIENT
  Age: 63 Year
  Sex: Female

DRUGS (27)
  1. CAFFEINE W/CHLORPHENAMINE MALEATE [Concomitant]
     Dosage: 5 MG, UNK
     Route: 065
     Dates: start: 20150701, end: 20150701
  2. CAFFEINE W/CHLORPHENAMINE MALEATE [Concomitant]
     Dosage: 5 MG, UNK
     Route: 065
     Dates: start: 20150708, end: 20150708
  3. CORTRIL [Suspect]
     Active Substance: HYDROCORTISONE
     Indication: HYPOPHYSECTOMY
     Route: 048
  4. PREDNIN [Suspect]
     Active Substance: PREDNISOLONE SODIUM PHOSPHATE
     Dosage: 100 MG, UNK
     Route: 048
     Dates: start: 20150501, end: 20150501
  5. PREDNIN [Suspect]
     Active Substance: PREDNISOLONE SODIUM PHOSPHATE
     Dosage: 20 MG, UNK
     Route: 048
     Dates: start: 20150708, end: 20150708
  6. ACETAMINOPHEN. [Concomitant]
     Active Substance: ACETAMINOPHEN
     Dosage: 300 MG, UNK
     Route: 065
     Dates: start: 20150701, end: 20150701
  7. SULFAMETHOXAZOLE [Concomitant]
     Active Substance: SULFAMETHOXAZOLE
     Indication: INFECTION PROPHYLAXIS
     Route: 048
  8. OFATUMUMAB [Suspect]
     Active Substance: OFATUMUMAB
     Dosage: 2000 MG, QD
     Route: 041
     Dates: start: 20150701, end: 20150701
  9. PREDNIN [Suspect]
     Active Substance: PREDNISOLONE SODIUM PHOSPHATE
     Indication: PREMEDICATION
     Dosage: 100 MG, UNK
     Route: 048
     Dates: start: 20150424, end: 20150424
  10. ACETAMINOPHEN. [Concomitant]
     Active Substance: ACETAMINOPHEN
     Indication: PREMEDICATION
     Dosage: 300 MG, UNK
     Route: 065
     Dates: start: 20140424, end: 20140424
  11. CAFFEINE W/CHLORPHENAMINE MALEATE [Concomitant]
     Dosage: 5 MG, UNK
     Route: 065
     Dates: start: 20150501, end: 20150501
  12. OFATUMUMAB [Suspect]
     Active Substance: OFATUMUMAB
     Dosage: 2000 MG, QD
     Route: 041
     Dates: start: 20150513, end: 20150513
  13. OFATUMUMAB [Suspect]
     Active Substance: OFATUMUMAB
     Dosage: 2000 MG, QD
     Route: 041
     Dates: start: 20150520, end: 20150520
  14. ACETAMINOPHEN. [Concomitant]
     Active Substance: ACETAMINOPHEN
     Dosage: 300 MG, UNK
     Route: 065
     Dates: start: 20150520, end: 20150520
  15. ACETAMINOPHEN. [Concomitant]
     Active Substance: ACETAMINOPHEN
     Dosage: 300 MG, UNK
     Route: 065
     Dates: start: 20150708, end: 20150708
  16. CAFFEINE W/CHLORPHENAMINE MALEATE [Concomitant]
     Dosage: 5 MG, UNK
     Route: 065
     Dates: start: 20150520, end: 20150520
  17. PREDNIN [Suspect]
     Active Substance: PREDNISOLONE SODIUM PHOSPHATE
     Dosage: 40 MG, UNK
     Route: 048
     Dates: start: 20150513, end: 20150513
  18. PREDNIN [Suspect]
     Active Substance: PREDNISOLONE SODIUM PHOSPHATE
     Dosage: 20 MG, UNK
     Route: 048
     Dates: start: 20150701, end: 20150701
  19. ACETAMINOPHEN. [Concomitant]
     Active Substance: ACETAMINOPHEN
     Dosage: 300 MG, UNK
     Route: 065
     Dates: start: 20150513, end: 20150513
  20. CAFFEINE W/CHLORPHENAMINE MALEATE [Concomitant]
     Dosage: 5 MG, UNK
     Route: 065
     Dates: start: 20150513, end: 20150513
  21. OFATUMUMAB [Suspect]
     Active Substance: OFATUMUMAB
     Indication: CHRONIC LYMPHOCYTIC LEUKAEMIA
     Dosage: 300 MG, QD
     Route: 041
     Dates: start: 20150424, end: 20150424
  22. OFATUMUMAB [Suspect]
     Active Substance: OFATUMUMAB
     Dosage: 2000 MG, QD
     Route: 041
     Dates: start: 20150708, end: 20150708
  23. ACETAMINOPHEN. [Concomitant]
     Active Substance: ACETAMINOPHEN
     Dosage: 300 MG, UNK
     Route: 065
     Dates: start: 20150501, end: 20150501
  24. CAFFEINE W/CHLORPHENAMINE MALEATE [Concomitant]
     Indication: PREMEDICATION
     Dosage: 5 MG, UNK
     Route: 065
     Dates: start: 20150424, end: 20150424
  25. OFATUMUMAB [Suspect]
     Active Substance: OFATUMUMAB
     Indication: B-CELL SMALL LYMPHOCYTIC LYMPHOMA
     Dosage: 2000 MG, QD
     Route: 041
     Dates: start: 20150501, end: 20150501
  26. PREDNIN [Suspect]
     Active Substance: PREDNISOLONE SODIUM PHOSPHATE
     Dosage: 40 MG, UNK
     Route: 048
     Dates: start: 20150520, end: 20150520
  27. VALGANCICLOVIR [Concomitant]
     Active Substance: VALGANCICLOVIR
     Indication: INFECTION PROPHYLAXIS
     Route: 048

REACTIONS (6)
  - Oxygen saturation decreased [Recovered/Resolved]
  - Urticaria [Recovered/Resolved]
  - B-cell small lymphocytic lymphoma [Fatal]
  - Malignant neoplasm progression [Fatal]
  - Febrile neutropenia [Not Recovered/Not Resolved]
  - Infection [Recovering/Resolving]

NARRATIVE: CASE EVENT DATE: 20150424
